FAERS Safety Report 9916660 (Version 2)
Quarter: 2014Q2

REPORT INFORMATION
  Report Type: Spontaneous
  Country: FR (occurrence: FR)
  Receive Date: 20140221
  Receipt Date: 20140410
  Transmission Date: 20141212
  Serious: Yes (Hospitalization)
  Sender: FDA-Public Use
  Company Number: FR-009507513-1402FRA006464

PATIENT
  Age: 75 Year
  Sex: Female
  Weight: 60 kg

DRUGS (6)
  1. JANUMET [Suspect]
     Indication: TYPE 2 DIABETES MELLITUS
     Dosage: 1 DF, BID
     Route: 048
     Dates: end: 20140203
  2. JANUMET [Suspect]
     Dosage: UNK
     Dates: end: 20140203
  3. NOVO-NORM [Suspect]
     Indication: TYPE 2 DIABETES MELLITUS
     Dosage: 1 MG, BID
     Route: 048
     Dates: end: 20140129
  4. DIAMICRON [Suspect]
     Indication: TYPE 2 DIABETES MELLITUS
     Dosage: 180 MG, QD
     Route: 048
  5. AXELER [Suspect]
     Indication: HYPERTENSION
     Dosage: 1 DF, QD
     Route: 048
  6. DOLENIO [Suspect]
     Indication: OSTEOARTHRITIS
     Dosage: 1 DF, QD
     Route: 048

REACTIONS (3)
  - Hepatic steatosis [Recovered/Resolved]
  - Transaminases increased [Recovered/Resolved]
  - Angioedema [Recovered/Resolved]
